FAERS Safety Report 5774906-5 (Version None)
Quarter: 2008Q2

REPORT INFORMATION
  Report Type: 
  Country: None (occurrence: None)
  Receive Date: 20080616
  Receipt Date: 20080616
  Transmission Date: 20081010
  Serious: Yes (Hospitalization)
  Sender: FDA-Public Use
  Company Number: None

PATIENT
  Sex: Female
  Weight: 100 kg

DRUGS (2)
  1. CYCLOPHOSPHAMIDE [Suspect]
     Dosage: 1300 MG
  2. DOXORUBICIN HYDROCHLORIDE [Suspect]
     Dosage: 130 MG

REACTIONS (1)
  - FEBRILE NEUTROPENIA [None]
